FAERS Safety Report 25575917 (Version 2)
Quarter: 2025Q3

REPORT INFORMATION
  Report Type: Spontaneous
  Country: EU (occurrence: EU)
  Receive Date: 20250718
  Receipt Date: 20250806
  Transmission Date: 20251020
  Serious: Yes (Hospitalization, Other)
  Sender: AUROBINDO
  Company Number: EU-BAYER-2025A084907

PATIENT
  Age: 19 Year
  Sex: Male

DRUGS (1)
  1. CIPROFLOXACIN [Suspect]
     Active Substance: CIPROFLOXACIN
     Indication: Arthritis salmonella
     Route: 065

REACTIONS (12)
  - Arthritis bacterial [Unknown]
  - Bone infarction [Unknown]
  - Hepatocellular injury [Unknown]
  - Myositis [Unknown]
  - Haemoglobin decreased [Unknown]
  - Back pain [Unknown]
  - Arthralgia [Unknown]
  - Pyrexia [Unknown]
  - Oedema peripheral [Unknown]
  - Haematoma [Unknown]
  - Joint space narrowing [Unknown]
  - Bone disorder [Unknown]
